FAERS Safety Report 8464564-3 (Version None)
Quarter: 2012Q2

REPORT INFORMATION
  Report Type: 
  Country: None (occurrence: None)
  Receive Date: 20120620
  Receipt Date: 20120620
  Transmission Date: 20120825
  Serious: Yes (Other)
  Sender: FDA-Public Use
  Company Number: None

PATIENT
  Sex: Female

DRUGS (2)
  1. CENTRUM SILVER (MULTIMINERALS, MULTIVITAMINS) UNKNOWN [Suspect]
  2. PREMARIN [Suspect]
     Dosage: 1.25 MG

REACTIONS (1)
  - COELIAC DISEASE [None]
